FAERS Safety Report 15841081 (Version 1)
Quarter: 2019Q1

REPORT INFORMATION
  Report Type: Report from Study
  Country: RU (occurrence: RU)
  Receive Date: 20190118
  Receipt Date: 20190118
  Transmission Date: 20190417
  Serious: Yes (Other)
  Sender: FDA-Public Use
  Company Number: RU-ACCORD-048062

PATIENT
  Age: 30 Year
  Sex: Male

DRUGS (2)
  1. LEVETIRACETAM. [Suspect]
     Active Substance: LEVETIRACETAM
     Indication: EPILEPSY
  2. PERAMPANEL [Interacting]
     Active Substance: PERAMPANEL
     Indication: EPILEPSY
     Dosage: UP-TITRATION OF PERAMPANEL

REACTIONS (2)
  - Hostility [Recovered/Resolved]
  - Drug interaction [Unknown]
